FAERS Safety Report 14132511 (Version 1)
Quarter: 2017Q4

REPORT INFORMATION
  Report Type: Spontaneous
  Country: DE (occurrence: DE)
  Receive Date: 20171027
  Receipt Date: 20171027
  Transmission Date: 20180321
  Serious: Yes (Death, Other)
  Sender: FDA-Public Use
  Company Number: DE-CIPLA LTD.-2017DE18567

PATIENT

DRUGS (23)
  1. CISPLATIN. [Suspect]
     Active Substance: CISPLATIN
     Dosage: TWO BOUTS
     Route: 065
  2. ETOPOSIDE. [Suspect]
     Active Substance: ETOPOSIDE
     Indication: MIXED ADENONEUROENDOCRINE CARCINOMA
     Dosage: UNK (FOUR COURSES)
     Route: 065
  3. TOPOTECAN [Suspect]
     Active Substance: TOPOTECAN HYDROCHLORIDE
     Indication: MIXED ADENONEUROENDOCRINE CARCINOMA
     Dosage: UNK
     Route: 065
  4. FOLINIC ACID [Suspect]
     Active Substance: LEUCOVORIN
     Indication: MIXED ADENONEUROENDOCRINE CARCINOMA
     Dosage: UNK
     Route: 065
  5. TEMOZOLOMIDE. [Suspect]
     Active Substance: TEMOZOLOMIDE
     Indication: MIXED ADENONEUROENDOCRINE CARCINOMA
     Dosage: UNK
     Route: 065
  6. EVEROLIMUS. [Suspect]
     Active Substance: EVEROLIMUS
     Dosage: UNK
     Route: 065
  7. NIVOLUMAB [Suspect]
     Active Substance: NIVOLUMAB
     Indication: MIXED ADENONEUROENDOCRINE CARCINOMA
     Dosage: UNK
     Route: 065
  8. CYCLOPHOSPHAMIDE. [Suspect]
     Active Substance: CYCLOPHOSPHAMIDE
     Indication: MIXED ADENONEUROENDOCRINE CARCINOMA
     Dosage: UNK
     Route: 065
  9. FLUOROURACIL. [Suspect]
     Active Substance: FLUOROURACIL
     Indication: MIXED ADENONEUROENDOCRINE CARCINOMA
     Dosage: UNK
     Route: 065
  10. IRINOTECAN [Suspect]
     Active Substance: IRINOTECAN
     Indication: MIXED ADENONEUROENDOCRINE CARCINOMA
     Dosage: UNK
     Route: 065
  11. EPIRUBICIN [Suspect]
     Active Substance: EPIRUBICIN
     Indication: MIXED ADENONEUROENDOCRINE CARCINOMA
     Dosage: UNK
     Route: 065
  12. CISPLATIN. [Suspect]
     Active Substance: CISPLATIN
     Indication: MIXED ADENONEUROENDOCRINE CARCINOMA
     Dosage: UNK (4 COURSES GIVEN WEEKLY)
     Route: 065
  13. CISPLATIN. [Suspect]
     Active Substance: CISPLATIN
     Dosage: UNK (FOUR COURSES)
     Route: 065
  14. PACLITAXEL. [Suspect]
     Active Substance: PACLITAXEL
     Indication: MIXED ADENONEUROENDOCRINE CARCINOMA
     Dosage: UNK (TWO BOUTS)
     Route: 065
  15. EVEROLIMUS. [Suspect]
     Active Substance: EVEROLIMUS
     Indication: MIXED ADENONEUROENDOCRINE CARCINOMA
     Dosage: UNK (TWO BOUTS)
     Route: 065
  16. BEVACIZUMAB. [Suspect]
     Active Substance: BEVACIZUMAB
     Indication: MIXED ADENONEUROENDOCRINE CARCINOMA
     Dosage: UNK
     Route: 065
  17. CAPECITABINE. [Suspect]
     Active Substance: CAPECITABINE
     Indication: MIXED ADENONEUROENDOCRINE CARCINOMA
     Dosage: UNK
     Route: 065
  18. BEVACIZUMAB. [Suspect]
     Active Substance: BEVACIZUMAB
     Dosage: UNK
     Route: 065
  19. OXALIPLATIN. [Suspect]
     Active Substance: OXALIPLATIN
     Indication: MIXED ADENONEUROENDOCRINE CARCINOMA
     Dosage: UNK
     Route: 065
  20. CARBOPLATIN. [Suspect]
     Active Substance: CARBOPLATIN
     Indication: MIXED ADENONEUROENDOCRINE CARCINOMA
     Dosage: UNK
     Route: 065
  21. DOCETAXEL. [Suspect]
     Active Substance: DOCETAXEL
     Indication: MIXED ADENONEUROENDOCRINE CARCINOMA
     Dosage: UNK
     Route: 065
  22. FOLINIC ACID [Suspect]
     Active Substance: LEUCOVORIN
     Dosage: UNK
     Route: 065
  23. FLUOROURACIL. [Suspect]
     Active Substance: FLUOROURACIL
     Dosage: UNK
     Route: 065

REACTIONS (5)
  - Metastatic neoplasm [Unknown]
  - Premature delivery [Unknown]
  - Neoplasm progression [Unknown]
  - Exposure during pregnancy [Unknown]
  - Death [Fatal]
